FAERS Safety Report 4920881-2 (Version None)
Quarter: 2006Q1

REPORT INFORMATION
  Report Type: 
  Country: None (occurrence: None)
  Receive Date: 20060223
  Receipt Date: 20050105
  Transmission Date: 20060701
  Serious: Yes (Death)
  Sender: FDA-Public Use
  Company Number: US-MERCK-0501USA00618

PATIENT
  Age: 81 Year
  Sex: Female
  Weight: 64 kg

DRUGS (8)
  1. VIOXX [Suspect]
     Indication: ARTHRITIS
     Route: 048
     Dates: start: 20030601, end: 20040601
  2. VIOXX [Suspect]
     Indication: BACK PAIN
     Route: 048
     Dates: start: 20030601, end: 20040601
  3. ASPIRIN [Concomitant]
     Route: 065
  4. FLEXERIL [Concomitant]
     Route: 065
  5. PRAVACHOL [Concomitant]
     Route: 065
  6. PLAVIX [Concomitant]
     Route: 065
  7. ATENOLOL [Concomitant]
     Route: 065
  8. HYDROCHLOROTHIAZIDE [Concomitant]
     Route: 065

REACTIONS (4)
  - ATRIAL FIBRILLATION [None]
  - CEREBROVASCULAR ACCIDENT [None]
  - FALL [None]
  - TRANSIENT ISCHAEMIC ATTACK [None]
